FAERS Safety Report 4287025-4 (Version None)
Quarter: 2004Q1

REPORT INFORMATION
  Report Type: 
  Country: None (occurrence: None)
  Receive Date: 20040205
  Receipt Date: 20040115
  Transmission Date: 20041129
  Serious: Yes (Hospitalization, Other)
  Sender: FDA-Public Use
  Company Number: USA040156798

PATIENT
  Age: 81 Year
  Sex: Female

DRUGS (4)
  1. FORTEO [Suspect]
     Indication: OSTEOPOROSIS
     Dates: start: 20031118, end: 20031121
  2. HIGH BLOOD PRESSURE MEDS [Concomitant]
  3. REMICADE [Concomitant]
  4. PROCRIT (ERYTHROPOIETIN) [Concomitant]

REACTIONS (7)
  - ANAEMIA [None]
  - BRONCHITIS [None]
  - DEHYDRATION [None]
  - DIARRHOEA [None]
  - HIP FRACTURE [None]
  - INFLUENZA LIKE ILLNESS [None]
  - RIB FRACTURE [None]
